FAERS Safety Report 4286151-3 (Version None)
Quarter: 2004Q1

REPORT INFORMATION
  Report Type: 
  Country: None (occurrence: None)
  Receive Date: 20040116
  Receipt Date: 20031217
  Transmission Date: 20041129
  Serious: Yes (Other)
  Sender: FDA-Public Use
  Company Number: HQWYE733118DEC03

PATIENT
  Age: 53 Year
  Sex: Female

DRUGS (2)
  1. PROTONIX [Suspect]
     Dosage: INTRAVENOUS
     Route: 042
     Dates: start: 20030101, end: 20030101
  2. PHENYTOIN [Suspect]
     Dates: start: 20030101, end: 20030101

REACTIONS (1)
  - THROMBOCYTOPENIA [None]
